FAERS Safety Report 14584755 (Version 1)
Quarter: 2018Q1

REPORT INFORMATION
  Report Type: Spontaneous
  Country: DE (occurrence: DE)
  Receive Date: 20180301
  Receipt Date: 20180301
  Transmission Date: 20180509
  Serious: Yes (Hospitalization)
  Sender: FDA-Public Use
  Company Number: DE-UNICHEM PHARMACEUTICALS (USA) INC-UCM201802-000051

PATIENT
  Age: 44 Year
  Sex: Female
  Weight: 60 kg

DRUGS (4)
  1. VENLAFAXINE [Suspect]
     Active Substance: VENLAFAXINE HYDROCHLORIDE
     Indication: MAJOR DEPRESSION
  2. THIOPENTAL [Concomitant]
     Active Substance: THIOPENTAL
     Route: 042
  3. DIAZEPAM. [Suspect]
     Active Substance: DIAZEPAM
     Indication: MAJOR DEPRESSION
  4. LAMOTRIGINE. [Suspect]
     Active Substance: LAMOTRIGINE
     Indication: MAJOR DEPRESSION
     Dosage: 6-8 GRAMS

REACTIONS (6)
  - Toxicity to various agents [Unknown]
  - Generalised tonic-clonic seizure [Unknown]
  - Coma [Unknown]
  - Serotonin syndrome [Unknown]
  - Intentional overdose [Unknown]
  - Suicide attempt [Unknown]
